FAERS Safety Report 5723144-0 (Version None)
Quarter: 2008Q2

REPORT INFORMATION
  Report Type: 
  Country: None (occurrence: None)
  Receive Date: 20080430
  Receipt Date: 20080428
  Transmission Date: 20081010
  Serious: Yes (Other)
  Sender: FDA-Public Use
  Company Number: PHBS2008PT04352

PATIENT
  Age: 34 Year
  Sex: Female

DRUGS (1)
  1. SYNTOCINON [Suspect]

REACTIONS (2)
  - DRUG INEFFECTIVE [None]
  - UTERINE ATONY [None]
